FAERS Safety Report 10354857 (Version 1)
Quarter: 2014Q3

REPORT INFORMATION
  Report Type: Report from Study
  Country: NZ (occurrence: NZ)
  Receive Date: 20140731
  Receipt Date: 20140731
  Transmission Date: 20150326
  Serious: Yes (Death)
  Sender: FDA-Public Use
  Company Number: NZ-BAXTER-2014BAX042621

PATIENT

DRUGS (1)
  1. PLASMA-LYTE 148 [Suspect]
     Active Substance: MAGNESIUM CHLORIDE\POTASSIUM CHLORIDE\SODIUM ACETATE\SODIUM CHLORIDE\SODIUM GLUCONATE
     Indication: FLUID REPLACEMENT
     Route: 042
     Dates: start: 20140614

REACTIONS (4)
  - Arthritis bacterial [Fatal]
  - Cerebral infarction [Fatal]
  - Meningitis pneumococcal [Fatal]
  - Bacteraemia [Fatal]
